FAERS Safety Report 18350929 (Version 1)
Quarter: 2020Q4

REPORT INFORMATION
  Report Type: Spontaneous
  Country: LB (occurrence: LB)
  Receive Date: 20201006
  Receipt Date: 20201006
  Transmission Date: 20210114
  Serious: Yes (Other)
  Sender: FDA-Public Use
  Company Number: LB-ASTRAZENECA-2020SF25592

PATIENT
  Sex: Male

DRUGS (1)
  1. TAGRISSO [Suspect]
     Active Substance: OSIMERTINIB
     Indication: LUNG NEOPLASM MALIGNANT
     Dosage: 80.0MG UNKNOWN
     Route: 048

REACTIONS (2)
  - Metastases to liver [Unknown]
  - Malignant neoplasm progression [Unknown]
